FAERS Safety Report 5431661-6 (Version None)
Quarter: 2007Q3

REPORT INFORMATION
  Report Type: 
  Country: None (occurrence: None)
  Receive Date: 20070830
  Receipt Date: 20070824
  Transmission Date: 20080115
  Serious: No
  Sender: FDA-Public Use
  Company Number: JP-ASTRAZENECA-2007AP03843

PATIENT
  Sex: Female

DRUGS (2)
  1. ARIMIDEX [Suspect]
     Indication: BREAST CANCER
     Route: 048
     Dates: start: 20040401, end: 20070501
  2. ARIMIDEX [Suspect]
     Route: 048
     Dates: start: 20070101

REACTIONS (1)
  - WHITE BLOOD CELL COUNT DECREASED [None]
